FAERS Safety Report 10011920 (Version 1)
Quarter: 2014Q1

REPORT INFORMATION
  Report Type: Spontaneous
  Country: SK (occurrence: SK)
  Receive Date: 20140314
  Receipt Date: 20140314
  Transmission Date: 20141002
  Serious: Yes (Hospitalization, Other)
  Sender: FDA-Public Use
  Company Number: SK-ELI_LILLY_AND_COMPANY-SK201403001298

PATIENT
  Age: 72 Year
  Sex: Male
  Weight: 102 kg

DRUGS (10)
  1. CYMBALTA [Suspect]
     Indication: DEPRESSION
     Dosage: 60 MG, QD
     Route: 048
  2. FUROSEMID                          /00032601/ [Concomitant]
     Indication: MYOCARDIAL ISCHAEMIA
     Dosage: 125 MG, UNKNOWN
     Route: 048
  3. CORDARONE [Concomitant]
     Indication: MYOCARDIAL ISCHAEMIA
     Dosage: 200 MG, UNKNOWN
     Route: 048
  4. ACETYLSALICYLIC ACID [Concomitant]
     Indication: MYOCARDIAL ISCHAEMIA
     Dosage: 100 MG, UNKNOWN
     Route: 048
  5. THIOGAMMA [Concomitant]
     Indication: RENAL FAILURE CHRONIC
     Dosage: 600 MG, UNKNOWN
     Route: 048
  6. CARVEDIGAMMA [Concomitant]
     Indication: MYOCARDIAL ISCHAEMIA
     Dosage: 12.5 MG, UNKNOWN
     Route: 048
  7. NOLPAZA [Concomitant]
     Indication: DUODENAL ULCER
     Dosage: 20 MG, QD
     Route: 065
  8. MILURIT [Concomitant]
     Indication: RENAL FAILURE CHRONIC
     Dosage: 100 MG, UNKNOWN
     Route: 048
  9. CALCIUM [Concomitant]
     Indication: RENAL FAILURE CHRONIC
     Dosage: UNK, UNKNOWN
     Route: 048
  10. AMINO ACIDS [Concomitant]
     Indication: RENAL FAILURE CHRONIC
     Dosage: UNK, UNKNOWN
     Route: 048

REACTIONS (1)
  - Electrocardiogram QT prolonged [Recovered/Resolved]
